FAERS Safety Report 6878159-6 (Version None)
Quarter: 2010Q2

REPORT INFORMATION
  Report Type: 
  Country: None (occurrence: None)
  Receive Date: 20100623
  Receipt Date: 20081217
  Transmission Date: 20101027
  Serious: No
  Sender: FDA-Public Use
  Company Number: 2008-00154

PATIENT
  Sex: Male

DRUGS (3)
  1. ZICAM COLD REMEDY NASAL GEL [Suspect]
     Indication: NASAL CONGESTION
  2. ZICAM INTENSE SINUS RELIEF [Suspect]
     Indication: NASAL CONGESTION
  3. ZICAM INTENSE SINUS RELIEF [Suspect]

REACTIONS (2)
  - AGEUSIA [None]
  - ANOSMIA [None]
